FAERS Safety Report 24422730 (Version 1)
Quarter: 2024Q4

REPORT INFORMATION
  Report Type: Spontaneous
  Country: US (occurrence: US)
  Receive Date: 20241010
  Receipt Date: 20241010
  Transmission Date: 20250115
  Serious: No
  Sender: BAYER
  Company Number: US-BAYER-2024A144193

PATIENT
  Age: 79 Year
  Sex: Male

DRUGS (2)
  1. CLARITIN [Suspect]
     Active Substance: LORATADINE
     Indication: Hypersensitivity
     Dosage: 1 DF
     Route: 048
     Dates: start: 20241008, end: 20241008
  2. CLARITIN [Suspect]
     Active Substance: LORATADINE
     Indication: Nasopharyngitis

REACTIONS (1)
  - Drug ineffective [Not Recovered/Not Resolved]

NARRATIVE: CASE EVENT DATE: 20241008
